FAERS Safety Report 4699576-9 (Version None)
Quarter: 2005Q2

REPORT INFORMATION
  Report Type: 
  Country: None (occurrence: None)
  Receive Date: 20050624
  Receipt Date: 20050223
  Transmission Date: 20051028
  Serious: No
  Sender: FDA-Public Use
  Company Number: 2005UW03034

PATIENT
  Sex: Male

DRUGS (5)
  1. SEROQUEL [Suspect]
     Indication: PSYCHOTIC DISORDER
     Route: 050
     Dates: start: 20050211
  2. DILANTIN [Concomitant]
  3. HALDOL [Concomitant]
     Dates: end: 20050201
  4. ATIVAN [Concomitant]
     Indication: AGITATION
     Route: 050
     Dates: start: 20050127
  5. ULTRACAL [Concomitant]
     Indication: GASTROINTESTINAL TUBE INSERTION
     Dosage: DOSAGE - VARIES
     Route: 050
     Dates: start: 20050127

REACTIONS (4)
  - ALANINE AMINOTRANSFERASE INCREASED [None]
  - ASPARTATE AMINOTRANSFERASE INCREASED [None]
  - BLOOD ALKALINE PHOSPHATASE INCREASED [None]
  - HEPATIC ENZYME ABNORMAL [None]
